FAERS Safety Report 4685718-8 (Version None)
Quarter: 2005Q2

REPORT INFORMATION
  Report Type: 
  Country: None (occurrence: None)
  Receive Date: 20050608
  Receipt Date: 20050520
  Transmission Date: 20051028
  Serious: Yes (Hospitalization)
  Sender: FDA-Public Use
  Company Number: DSA_26466_2005

PATIENT
  Age: 41 Year
  Sex: Male

DRUGS (5)
  1. ATIVAN [Suspect]
     Dosage: 1 MG PO
     Route: 048
     Dates: end: 20050423
  2. CLOZAPINE [Suspect]
     Indication: SCHIZOPHRENIA
     Dosage: 12.5 MG Q DAY PO
     Route: 048
     Dates: start: 20050423, end: 20050423
  3. CIPRAMIL [Concomitant]
  4. PROCYCLIDINE HYDROCHLORIDE 2MG TAB [Concomitant]
  5. FLUPHENAZINE [Concomitant]

REACTIONS (3)
  - BLOOD PRESSURE DECREASED [None]
  - DRUG INTERACTION [None]
  - HEART RATE DECREASED [None]
